FAERS Safety Report 6681468-7 (Version None)
Quarter: 2010Q2

REPORT INFORMATION
  Report Type: 
  Country: None (occurrence: None)
  Receive Date: 20100414
  Receipt Date: 20100403
  Transmission Date: 20101027
  Serious: Yes (Hospitalization)
  Sender: FDA-Public Use
  Company Number: NSADSS2001029126

PATIENT
  Age: 86 Year
  Sex: Female

DRUGS (7)
  1. LEVAQUIN [Suspect]
     Indication: PNEUMONIA
     Route: 048
  2. COZAAR [Concomitant]
     Route: 065
  3. LEVOXYL [Concomitant]
     Route: 065
  4. ASPIRIN [Concomitant]
     Route: 065
  5. RHYTHMOL [Concomitant]
     Route: 065
  6. LANOXIN [Concomitant]
     Route: 065
  7. PRILOSEC [Concomitant]
     Route: 065

REACTIONS (3)
  - BLOOD SODIUM DECREASED [None]
  - CEREBROVASCULAR ACCIDENT [None]
  - THROMBOTIC STROKE [None]
